FAERS Safety Report 10758174 (Version 2)
Quarter: 2015Q1

REPORT INFORMATION
  Report Type: Spontaneous
  Country: MY (occurrence: MY)
  Receive Date: 20150203
  Receipt Date: 20150209
  Transmission Date: 20150721
  Serious: Yes (Life-Threatening, Hospitalization)
  Sender: FDA-Public Use
  Company Number: MY-BRACCO-000012

PATIENT
  Age: 74 Year
  Sex: Female

DRUGS (1)
  1. MULTIHANCE [Suspect]
     Active Substance: GADOBENATE DIMEGLUMINE
     Indication: NUCLEAR MAGNETIC RESONANCE IMAGING SPINAL
     Route: 042
     Dates: start: 20150116, end: 20150116

REACTIONS (3)
  - Vomiting [Recovered/Resolved]
  - Hypotension [None]
  - Choking [Recovered/Resolved]

NARRATIVE: CASE EVENT DATE: 20150116
